FAERS Safety Report 6575374-6 (Version None)
Quarter: 2010Q1

REPORT INFORMATION
  Report Type: 
  Country: None (occurrence: None)
  Receive Date: 20100202
  Receipt Date: 20100126
  Transmission Date: 20100710
  Serious: Yes (Other)
  Sender: FDA-Public Use
  Company Number: SPV1-2010-00156

PATIENT
  Age: 17 Year
  Sex: Male

DRUGS (1)
  1. INTUNIV [Suspect]
     Indication: ATTENTION DEFICIT/HYPERACTIVITY DISORDER
     Dosage: 1 MG, 1X/DAY:QD, ORAL, 2 MG, 1X/DAY:QD, ORAL
     Route: 048

REACTIONS (1)
  - LOSS OF CONSCIOUSNESS [None]
